FAERS Safety Report 15371141 (Version 1)
Quarter: 2018Q3

REPORT INFORMATION
  Report Type: Spontaneous
  Country: US (occurrence: US)
  Receive Date: 20180905
  Receipt Date: 20180905
  Transmission Date: 20181010
  Serious: Yes (Other)
  Sender: FDA-Public Use
  Company Number: None

PATIENT
  Age: 34 Year
  Sex: Female
  Weight: 60.75 kg

DRUGS (9)
  1. NUVARING [Concomitant]
     Active Substance: ETHINYL ESTRADIOL\ETONOGESTREL
  2. MONTELUKAST [Concomitant]
     Active Substance: MONTELUKAST SODIUM
  3. PROAIR HFA [Concomitant]
     Active Substance: ALBUTEROL SULFATE
  4. STELARA [Suspect]
     Active Substance: USTEKINUMAB
     Indication: CROHN^S DISEASE
     Dosage: ?          QUANTITY:1 IV DOSE;OTHER FREQUENCY:ONCE;?
     Route: 042
     Dates: start: 20180806
  5. LORATADINE. [Concomitant]
     Active Substance: LORATADINE
  6. PREDNISONE. [Concomitant]
     Active Substance: PREDNISONE
  7. TIZANIDINE. [Concomitant]
     Active Substance: TIZANIDINE
  8. TOPIRAMIATE [Concomitant]
  9. ADVAIR HFA [Concomitant]
     Active Substance: FLUTICASONE PROPIONATE\SALMETEROL XINAFOATE

REACTIONS (2)
  - Pain in extremity [None]
  - Axillary vein thrombosis [None]

NARRATIVE: CASE EVENT DATE: 20180813
